FAERS Safety Report 13535338 (Version 1)
Quarter: 2017Q2

REPORT INFORMATION
  Report Type: Spontaneous
  Country: CH (occurrence: CH)
  Receive Date: 20170511
  Receipt Date: 20170511
  Transmission Date: 20170830
  Serious: Yes (Hospitalization)
  Sender: FDA-Public Use
  Company Number: CH-PFIZER INC-2017198322

PATIENT
  Age: 16 Year
  Sex: Female
  Weight: 47 kg

DRUGS (4)
  1. ZITHROMAX [Suspect]
     Active Substance: AZITHROMYCIN DIHYDRATE
     Indication: PHARYNGITIS
     Dosage: 500 MG, 1X/DAY
     Route: 048
     Dates: start: 20170329, end: 20170402
  2. PARACETAMOL [Suspect]
     Active Substance: ACETAMINOPHEN
     Indication: PYREXIA
     Dosage: UNK
     Route: 048
     Dates: start: 20170328, end: 20170401
  3. MINAC [Suspect]
     Active Substance: MINOCYCLINE HYDROCHLORIDE
     Indication: ACNE INFANTILE
     Dosage: 50 MG, UNK
     Route: 048
     Dates: start: 201702, end: 20170401
  4. KETESSE [Suspect]
     Active Substance: DEXKETOPROFEN TROMETAMOL
     Indication: ODYNOPHAGIA
     Dosage: UNK
     Route: 048
     Dates: start: 20170328, end: 20170401

REACTIONS (5)
  - Eosinophilia [Recovering/Resolving]
  - Drug reaction with eosinophilia and systemic symptoms [Recovering/Resolving]
  - Rash maculo-papular [Recovering/Resolving]
  - Mixed liver injury [Recovering/Resolving]
  - Lymphadenopathy [Unknown]

NARRATIVE: CASE EVENT DATE: 20170328
